FAERS Safety Report 11465390 (Version 1)
Quarter: 2015Q3

REPORT INFORMATION
  Report Type: Spontaneous
  Country: US (occurrence: US)
  Receive Date: 20150907
  Receipt Date: 20150907
  Transmission Date: 20151125
  Serious: No
  Sender: FDA-Public Use
  Company Number: US-009507513-1509USA002471

PATIENT
  Age: 15 Year
  Sex: Female
  Weight: 68.27 kg

DRUGS (1)
  1. NEXPLANON [Suspect]
     Active Substance: ETONOGESTREL
     Indication: PAIN
     Dosage: 1 ROD/ 3 YEARS
     Route: 059
     Dates: start: 20140612

REACTIONS (3)
  - Amenorrhoea [Recovered/Resolved]
  - Product use issue [Unknown]
  - Menometrorrhagia [Unknown]

NARRATIVE: CASE EVENT DATE: 2014
